FAERS Safety Report 16138482 (Version 2)
Quarter: 2019Q2

REPORT INFORMATION
  Report Type: Report from Study
  Country: GR (occurrence: GR)
  Receive Date: 20190401
  Receipt Date: 20190408
  Transmission Date: 20190711
  Serious: Yes (Hospitalization, Other)
  Sender: FDA-Public Use
  Company Number: GR-SA-2019SA085334

PATIENT
  Age: 63 Year
  Sex: Female

DRUGS (16)
  1. ATACAND PLUS [Concomitant]
     Active Substance: CANDESARTAN CILEXETIL\HYDROCHLOROTHIAZIDE
  2. INSULIN GLARGINE [Suspect]
     Active Substance: INSULIN GLARGINE
     Indication: DIABETES MELLITUS
     Dosage: 90 U, QD
     Route: 058
  3. CORTISONE [Concomitant]
     Active Substance: CORTISONE\HYDROCORTISONE
  4. BUSCOPAN [Concomitant]
     Active Substance: BUTYLSCOPOLAMINE BROMIDE
  5. LYRICA [Concomitant]
     Active Substance: PREGABALIN
  6. ACTRAPID [Concomitant]
     Active Substance: INSULIN HUMAN
  7. NEXIUM I.V. [Concomitant]
     Active Substance: ESOMEPRAZOLE SODIUM
  8. XANAX [Concomitant]
     Active Substance: ALPRAZOLAM
  9. INSULIN GLULISINE [Suspect]
     Active Substance: INSULIN GLULISINE
     Indication: DIABETES MELLITUS
     Dosage: UNK UNK, UNK
     Route: 058
  10. DEPON [Concomitant]
     Active Substance: ACETAMINOPHEN
  11. ENLIFT [Concomitant]
  12. FUROSEMIDE. [Suspect]
     Active Substance: FUROSEMIDE
     Indication: HYPERTENSION
     Dosage: 1 DF, QD
     Route: 048
  13. T4 [Concomitant]
     Active Substance: LEVOTHYROXINE
  14. MADOPAR [Concomitant]
     Active Substance: BENSERAZIDE HYDROCHLORIDE\LEVODOPA
  15. CONCOR [Concomitant]
     Active Substance: BISOPROLOL FUMARATE
  16. CARVEPEN [Concomitant]
     Active Substance: CARVEDILOL

REACTIONS (21)
  - Renal failure [Unknown]
  - Hypertension [Unknown]
  - Limb discomfort [Unknown]
  - Skin disorder [Unknown]
  - Hand fracture [Unknown]
  - Gastrooesophageal reflux disease [Unknown]
  - Osteoporosis [Unknown]
  - Visceroptosis [Unknown]
  - Hypoglycaemia [Unknown]
  - Blood glucose increased [Unknown]
  - Blood pressure abnormal [Unknown]
  - Heart rate decreased [Unknown]
  - Musculoskeletal pain [Unknown]
  - Umbilical hernia [Unknown]
  - Bedridden [Unknown]
  - Hyperkalaemia [Unknown]
  - Cholelithiasis [Unknown]
  - Asthma [Unknown]
  - Injection site discomfort [Unknown]
  - Needle issue [Unknown]
  - Polyneuropathy [Unknown]

NARRATIVE: CASE EVENT DATE: 20190321
